FAERS Safety Report 24141755 (Version 1)
Quarter: 2024Q3

REPORT INFORMATION
  Report Type: Spontaneous
  Country: US (occurrence: None)
  Receive Date: 20240726
  Receipt Date: 20240726
  Transmission Date: 20241016
  Serious: Yes (Hospitalization)
  Sender: Public
  Company Number: None

PATIENT
  Age: 57 Year
  Sex: Female
  Weight: 149.7 kg

DRUGS (3)
  1. CISPLATIN [Suspect]
     Active Substance: CISPLATIN
     Dosage: OTHER FREQUENCY : QW FOR 7 WEEKS;?
     Route: 042
     Dates: start: 20240604, end: 20240724
  2. OLANZAPINE [Concomitant]
     Active Substance: OLANZAPINE
  3. ONDANSETRON [Concomitant]
     Active Substance: ONDANSETRON

REACTIONS (8)
  - Neutrophil count decreased [None]
  - Pancytopenia [None]
  - Odynophagia [None]
  - Electrolyte imbalance [None]
  - Blood magnesium decreased [None]
  - Blood phosphorus decreased [None]
  - Failure to thrive [None]
  - Hypophagia [None]

NARRATIVE: CASE EVENT DATE: 20240722
